FAERS Safety Report 9203207 (Version 1)
Quarter: 2013Q2

REPORT INFORMATION
  Report Type: Spontaneous
  Country: US (occurrence: US)
  Receive Date: 20130402
  Receipt Date: 20130402
  Transmission Date: 20140414
  Serious: Yes (Other)
  Sender: FDA-Public Use
  Company Number: US-JNJFOC-20130315718

PATIENT
  Age: 80 Year
  Sex: Female
  Weight: 65.32 kg

DRUGS (8)
  1. XARELTO [Suspect]
     Indication: PULMONARY EMBOLISM
     Route: 048
     Dates: start: 20130319
  2. XARELTO [Suspect]
     Indication: PULMONARY EMBOLISM
     Route: 048
     Dates: start: 20130112, end: 20130318
  3. NEXIUM [Concomitant]
     Indication: DYSPEPSIA
     Route: 048
  4. XANAX [Concomitant]
     Indication: ANXIETY
     Route: 048
  5. CALCIUM AND VITAMIN D [Concomitant]
     Indication: GENERAL PHYSICAL CONDITION ABNORMAL
     Dosage: 600 + 200 MG ONCE DAILY
     Route: 048
  6. VITAMIN D3 [Concomitant]
     Indication: GENERAL PHYSICAL CONDITION ABNORMAL
     Route: 048
  7. FOLIC ACID [Concomitant]
     Indication: GENERAL PHYSICAL CONDITION ABNORMAL
     Route: 048
  8. VITAMIN C [Concomitant]
     Indication: GENERAL PHYSICAL CONDITION ABNORMAL
     Route: 048

REACTIONS (2)
  - Neoplasm malignant [Not Recovered/Not Resolved]
  - Drug prescribing error [Recovered/Resolved]
